FAERS Safety Report 18948884 (Version 5)
Quarter: 2022Q3

REPORT INFORMATION
  Report Type: Spontaneous
  Country: FR (occurrence: FR)
  Receive Date: 20210227
  Receipt Date: 20220908
  Transmission Date: 20221027
  Serious: Yes (Life-Threatening, Hospitalization, Congenital Anomaly, Other)
  Sender: FDA-Public Use
  Company Number: None

PATIENT
  Age: 1 Day
  Sex: Female

DRUGS (12)
  1. OMEPRAZOLE [Suspect]
     Active Substance: OMEPRAZOLE
     Indication: Foetal exposure during pregnancy
     Dosage: MATERNAL DOSE: 40MG/12H (80 MG)
     Route: 064
     Dates: end: 20210202
  2. CEFTAZIDIME [Suspect]
     Active Substance: CEFTAZIDIME
     Indication: Foetal exposure during pregnancy
     Dosage: MATERNAL DOSE: 5 G, BID (5 G/12 H)
     Route: 064
     Dates: start: 20200119, end: 20210127
  3. AZACTAM [Suspect]
     Active Substance: AZTREONAM
     Indication: Foetal exposure during pregnancy
     Dosage: MATERNAL DOSE: 6 G AND 1G
     Route: 064
     Dates: start: 20210127, end: 20210202
  4. CEFTAZIDIME [Suspect]
     Active Substance: CEFTAZIDIME
     Indication: Foetal exposure during pregnancy
     Dosage: UNK (MATERNAL EXPOSURE DURING PREGNANCY)
     Route: 064
     Dates: start: 20200922, end: 20201007
  5. CREON [Suspect]
     Active Substance: PANCRELIPASE AMYLASE\PANCRELIPASE LIPASE\PANCRELIPASE PROTEASE
     Indication: Foetal exposure during pregnancy
     Dosage: MATERNAL DOSE: 11 TO 16 GEL PER DAY/11-16 CAPS DAILY
     Route: 064
     Dates: end: 20210202
  6. BRICANYL [Suspect]
     Active Substance: TERBUTALINE SULFATE
     Indication: Foetal exposure during pregnancy
     Dosage: MATERNAL DOSE: 2 INHALATIONS, IF NEEDED
     Route: 064
  7. .ALPHA.-TOCOPHEROL ACETATE, D- [Suspect]
     Active Substance: .ALPHA.-TOCOPHEROL ACETATE, D-
     Indication: Foetal exposure during pregnancy
     Dosage: MATERNAL DOSE: UNK
     Route: 064
  8. KALYDECO [Suspect]
     Active Substance: IVACAFTOR
     Indication: Foetal exposure during pregnancy
     Dosage: MATERNAL DOSE: UNK
     Route: 064
     Dates: start: 2020, end: 20210202
  9. CALCIUM PHOSPHATE, DIBASIC, ANHYDROUS\MAGNESIUM GLYCEROPHOSPHATE\PHOSP [Suspect]
     Active Substance: CALCIUM PHOSPHATE, DIBASIC, ANHYDROUS\MAGNESIUM GLYCEROPHOSPHATE\PHOSPHORIC ACID\SODIUM PHOSPHATE, D
     Indication: Foetal exposure during pregnancy
     Dosage: MATERNAL DOSE: 200 DROPS
     Route: 064
  10. PANCREATIN [Suspect]
     Active Substance: PANCRELIPASE
     Indication: Foetal exposure during pregnancy
     Dosage: MATERNAL DOSE: 160, 000 UI/D
     Route: 064
  11. SODIUM PHOSPHATE [Suspect]
     Active Substance: SODIUM PHOSPHATE
     Indication: Foetal exposure during pregnancy
     Dosage: MATERNAL DOSE: UNK
     Route: 064
  12. INSULIN NOS [Suspect]
     Active Substance: INSULIN NOS
     Indication: Foetal exposure during pregnancy
     Dosage: MATERNAL DOSE: 200 DROPS (1/12 MILLITRE)
     Route: 064

REACTIONS (3)
  - Pulmonary haemorrhage [Recovered/Resolved]
  - Neonatal respiratory distress syndrome [Unknown]
  - Foetal exposure during pregnancy [Unknown]

NARRATIVE: CASE EVENT DATE: 20210202
